FAERS Safety Report 13048795 (Version 2)
Quarter: 2017Q1

REPORT INFORMATION
  Report Type: Spontaneous
  Country: FR (occurrence: FR)
  Receive Date: 20161221
  Receipt Date: 20170109
  Transmission Date: 20170428
  Serious: Yes (Other)
  Sender: FDA-Public Use
  Company Number: FR-ROCHE-1870457

PATIENT
  Age: 11 Year
  Sex: Male
  Weight: 35 kg

DRUGS (1)
  1. XOLAIR [Suspect]
     Active Substance: OMALIZUMAB
     Indication: ASTHMA
     Dosage: 300 MG, (TWICE MONTHLY)
     Route: 058
     Dates: start: 20161118

REACTIONS (4)
  - Hot flush [Recovered/Resolved]
  - Blood pressure systolic decreased [Recovered/Resolved]
  - Headache [Recovered/Resolved]
  - Dizziness [Recovered/Resolved]

NARRATIVE: CASE EVENT DATE: 20161118
